FAERS Safety Report 14942205 (Version 1)
Quarter: 2018Q2

REPORT INFORMATION
  Report Type: Spontaneous
  Country: FR (occurrence: FR)
  Receive Date: 20180528
  Receipt Date: 20180528
  Transmission Date: 20180711
  Serious: Yes (Other)
  Sender: FDA-Public Use
  Company Number: FR-MERCK KGAA-2048510

PATIENT
  Age: 40 Year
  Sex: Male
  Weight: 72 kg

DRUGS (2)
  1. NOVOTHYROX [Suspect]
     Active Substance: LEVOTHYROXINE SODIUM
     Indication: THYROID DISORDER
     Route: 048
     Dates: start: 2017, end: 2017
  2. LEVOTHYROX 150 NF [Suspect]
     Active Substance: LEVOTHYROXINE SODIUM
     Route: 048
     Dates: start: 2017, end: 2017

REACTIONS (45)
  - Mental impairment [Recovered/Resolved]
  - Muscle hypertrophy [Recovered/Resolved]
  - Visual impairment [Recovered/Resolved]
  - Abnormal behaviour [Recovered/Resolved]
  - Social problem [Recovered/Resolved]
  - Depression [Recovered/Resolved]
  - Sleep disorder [Recovered/Resolved]
  - Nervousness [Recovered/Resolved]
  - Fatigue [Recovered/Resolved]
  - Dizziness [Recovered/Resolved]
  - Muscle atrophy [Recovered/Resolved]
  - Apathy [Recovered/Resolved]
  - Affect lability [Recovered/Resolved]
  - Feeling abnormal [Recovered/Resolved]
  - Emotional distress [Recovered/Resolved]
  - Agitation [Recovered/Resolved]
  - Balance disorder [Recovered/Resolved]
  - Disturbance in attention [Recovered/Resolved]
  - Psychiatric symptom [Recovered/Resolved]
  - Hypotonia [Recovered/Resolved]
  - Frustration tolerance decreased [Recovered/Resolved]
  - Neutrophil count increased [Recovered/Resolved]
  - Blood 25-hydroxycholecalciferol decreased [None]
  - Irritability [Recovered/Resolved]
  - Vision blurred [Recovered/Resolved]
  - Personal relationship issue [Recovered/Resolved]
  - Weight decreased [Recovered/Resolved]
  - Decreased activity [Recovered/Resolved]
  - Psychomotor hyperactivity [Recovered/Resolved]
  - Erectile dysfunction [Recovered/Resolved]
  - Blood thyroid stimulating hormone increased [Recovered/Resolved]
  - Gastrointestinal disorder [Recovered/Resolved]
  - Diarrhoea [Recovered/Resolved]
  - Headache [Recovered/Resolved]
  - Dyspnoea [Recovered/Resolved]
  - Memory impairment [Recovered/Resolved]
  - Social avoidant behaviour [Recovered/Resolved]
  - Impaired driving ability [Recovered/Resolved]
  - Job dissatisfaction [Recovered/Resolved]
  - Feeling jittery [Recovered/Resolved]
  - Merycism [Recovered/Resolved]
  - Loss of libido [Recovered/Resolved]
  - Aggression [Recovered/Resolved]
  - Mental fatigue [Recovered/Resolved]
  - Product formulation issue [Recovered/Resolved]

NARRATIVE: CASE EVENT DATE: 20170427
